FAERS Safety Report 8788809 (Version 2)
Quarter: 2012Q4

REPORT INFORMATION
  Report Type: Report from Study
  Country: DE (occurrence: DE)
  Receive Date: 20120916
  Receipt Date: 20120917
  Transmission Date: 20130627
  Serious: Yes (Hospitalization, Other)
  Sender: FDA-Public Use
  Company Number: DE-009507513-2011SP015247

PATIENT

DRUGS (98)
  1. POSACONAZOLE [Suspect]
     Dosage: 300 mg, BID
     Route: 042
     Dates: start: 20110304, end: 20110304
  2. POSACONAZOLE [Suspect]
     Dosage: 300 mg, QD
     Route: 042
     Dates: start: 20110305, end: 20110317
  3. POSACONAZOLE [Suspect]
     Dosage: 400 mg, BID
     Route: 048
     Dates: start: 20110318, end: 20110322
  4. POSACONAZOLE [Suspect]
     Dosage: 400 mg, BID
     Route: 048
     Dates: start: 20110327, end: 20110327
  5. PANTOPRAZOLE [Concomitant]
     Indication: PROPHYLAXIS
     Dosage: UNK UNK, QD
     Route: 048
     Dates: start: 20110221
  6. KALINOR [Concomitant]
     Indication: PROPHYLAXIS
     Dosage: UNK UNK, PRN
     Route: 048
     Dates: start: 20110222
  7. DELIX (RAMIPRIL) [Concomitant]
     Indication: HYPERTENSION
     Dosage: UNK UNK, BID
     Route: 048
     Dates: start: 20110221
  8. LERCANIDIPINE [Concomitant]
     Indication: HYPERTENSION
     Dosage: UNK UNK, QD
     Route: 048
     Dates: start: 20110221, end: 20110324
  9. ALLOPURINOL [Concomitant]
     Indication: PROPHYLAXIS
     Dosage: UNK UNK, QD
     Route: 048
     Dates: start: 20110221, end: 20110304
  10. TORSEMIDE [Concomitant]
     Indication: OEDEMA PERIPHERAL
     Dosage: UNK UNK, QD
     Route: 048
     Dates: start: 20110223
  11. AMPHOTERICIN B [Concomitant]
     Indication: PROPHYLAXIS
     Dosage: MOUTH WASH SOLUTION
     Route: 061
     Dates: start: 20110221
  12. DEXPANTHENOL [Concomitant]
     Indication: PROPHYLAXIS
     Dosage: MOUTH WASH SOLUTION
     Route: 031
     Dates: start: 20110221
  13. SODIUM CHLORIDE [Concomitant]
     Indication: FLUID REPLACEMENT
     Dosage: UNK UNK, BID
     Route: 042
     Dates: start: 20110228
  14. TAZOBACTAM [Concomitant]
     Indication: SINUSITIS
     Dosage: UNK UNK, TID
     Route: 042
     Dates: start: 20110221, end: 20110510
  15. ENOXAPARIN SODIUM [Concomitant]
     Indication: THROMBOSIS PROPHYLAXIS
     Dosage: UNK UNK, QD
     Route: 058
     Dates: start: 20110221
  16. RANITIDINE HYDROCHLORIDE [Concomitant]
     Indication: PROPHYLAXIS
     Dosage: UNK UNK, QD
     Route: 048
     Dates: start: 20110307, end: 20110328
  17. PLATELET (DIPYRIDAMOLE) [Concomitant]
     Indication: THROMBOCYTOPENIA
     Dosage: UNK UNK, QD
     Route: 042
     Dates: start: 20110312, end: 20110312
  18. CASPOFUNGIN ACETATE [Concomitant]
     Indication: FUNGAL INFECTION
     Dosage: UNK UNK, QD
     Route: 042
     Dates: start: 20110310, end: 20110318
  19. CEFTAZIDIME [Concomitant]
     Indication: SINUSITIS
     Dosage: UNK UNK, QD
     Route: 042
     Dates: start: 20110310, end: 20110318
  20. MOXIFLOXACIN HYDROCHLORIDE [Concomitant]
     Indication: SINUSITIS
     Dosage: UNK UNK, QD
     Route: 048
     Dates: start: 20110310, end: 20110317
  21. ACYCLOVIR [Concomitant]
     Indication: INFECTION PROPHYLAXIS
     Dosage: UNK UNK, BID
     Route: 048
     Dates: start: 20110309, end: 20110311
  22. DIPYRONE [Concomitant]
     Indication: PYREXIA
     Dosage: UNK UNK, QD
     Route: 048
     Dates: start: 20110310, end: 20110310
  23. DIPYRONE [Concomitant]
     Dosage: UNK
     Dates: start: 20110315, end: 20110315
  24. FUROSEMIDE [Concomitant]
     Indication: WEIGHT INCREASED
     Dosage: FLUID RETENTION
     Route: 042
     Dates: start: 20110312, end: 20110324
  25. DIPYRONE [Concomitant]
     Indication: PYREXIA
     Dosage: UNK UNK, QD
     Route: 042
     Dates: start: 20110315, end: 20110318
  26. VANCOMYCIN [Concomitant]
     Indication: INFECTION PROPHYLAXIS
     Dosage: UNK UNK, BID
     Route: 042
     Dates: start: 20110315, end: 20110321
  27. PLATELET (DIPYRIDAMOLE) [Concomitant]
     Indication: THROMBOCYTOPENIA
     Dosage: UNK UNK, ONCE
     Route: 042
     Dates: start: 20110317, end: 20110317
  28. AMITRIPTYLIN [Concomitant]
     Indication: DEPRESSED MOOD
     Dosage: UNK UNK, QD
     Route: 048
     Dates: start: 20110315, end: 20110326
  29. LIDOCAINE (+) PRILOCAINE [Concomitant]
     Indication: STOMATITIS
     Dosage: UNK UNK, PRN
     Route: 061
     Dates: start: 20110316
  30. PLATELET (DIPYRIDAMOLE) [Concomitant]
     Indication: THROMBOCYTOPENIA
     Dosage: UNK UNK, ONCE
     Route: 042
     Dates: start: 20110307, end: 20110307
  31. DIPYRONE [Concomitant]
     Indication: PYREXIA
     Dosage: UNK UNK, QD
     Route: 048
     Dates: start: 20110313, end: 20110313
  32. BEBETINA [Concomitant]
     Indication: PYREXIA
     Dosage: UNK UNK, QD
     Route: 042
     Dates: start: 20110312, end: 20110312
  33. METOPROLOL [Concomitant]
     Indication: HYPERTENSION
     Dosage: UNK UNK, QD
     Route: 048
     Dates: start: 20110319, end: 20110320
  34. FLUDARABINE PHOSPHATE [Concomitant]
     Indication: ACUTE MYELOID LEUKAEMIA
     Dosage: UNK UNK, QD
     Route: 042
     Dates: start: 20110319, end: 20110323
  35. ONDANSETRON [Concomitant]
     Indication: PROPHYLAXIS OF NAUSEA AND VOMITING
     Dosage: UNK UNK, QD
     Route: 042
     Dates: start: 20110319, end: 20110320
  36. MEROPENEM [Concomitant]
     Indication: INFECTION PROPHYLAXIS
     Dosage: UNK UNK, TID
     Route: 042
     Dates: start: 20110318, end: 20110331
  37. MEROPENEM [Concomitant]
     Indication: INFECTION PROPHYLAXIS
     Dosage: UNK UNK, TID
     Route: 042
     Dates: start: 20110318, end: 20110331
  38. CLARITHROMYCIN [Concomitant]
     Indication: INFECTION PROPHYLAXIS
     Dosage: UNK UNK, TID
     Route: 042
     Dates: start: 20110318, end: 20110320
  39. AMPHOTERICIN B [Concomitant]
     Indication: FUNGAL INFECTION
     Dosage: UNK UNK, QD
     Route: 042
     Dates: start: 20110318, end: 20110404
  40. CLARITHROMYCIN [Concomitant]
     Indication: INFECTION PROPHYLAXIS
     Dosage: UNK UNK, BID
     Route: 048
     Dates: start: 20110323, end: 20110325
  41. POTASSIUM (UNSPECIFIED) [Concomitant]
     Indication: PROPHYLACTIC CHEMOTHERAPY
     Dosage: (ALKALESCENCY OF URINE)
     Route: 048
     Dates: start: 20110322, end: 20110324
  42. MEPERIDINE HYDROCHLORIDE [Concomitant]
     Indication: PYREXIA
     Dosage: UNK UNK, ONCE
     Route: 042
     Dates: start: 20110322, end: 20110322
  43. BEBETINA [Concomitant]
     Indication: PYREXIA
     Dosage: UNK UNK, PRN
     Route: 042
     Dates: start: 20110322, end: 20110322
  44. DIPYRONE [Concomitant]
     Indication: PYREXIA
     Dosage: UNK UNK, ONCE
     Route: 042
     Dates: start: 20110322, end: 20110322
  45. METOCLOPRAMIDE [Concomitant]
     Indication: NAUSEA
     Dosage: HCL
     Route: 042
     Dates: start: 20110323, end: 20110323
  46. FUROSEMIDE [Concomitant]
     Indication: OEDEMA
     Dosage: (WEIGHT GAIN)
     Route: 042
     Dates: start: 20110323, end: 20110323
  47. LORAZEPAM [Concomitant]
     Indication: DEPRESSED MOOD
     Dosage: UNK UNK, QD
     Route: 048
     Dates: start: 20110323, end: 20110324
  48. SODIUM CHLORIDE [Concomitant]
     Indication: FLUID REPLACEMENT
     Dosage: 0.9 %
     Route: 048
     Dates: start: 20110322, end: 20110323
  49. MELPHALAN [Concomitant]
     Indication: ACUTE MYELOID LEUKAEMIA
     Dosage: UNK UNK, QD
     Route: 042
     Dates: start: 20110321, end: 20110322
  50. SODIUM CHLORIDE [Concomitant]
     Indication: PREMEDICATION
     Dosage: 0.9 %
     Route: 042
     Dates: start: 20110322, end: 20110325
  51. SOLU-DECORTIN-H [Concomitant]
     Indication: PREMEDICATION
     Dosage: UNK UNK, QD
     Route: 042
     Dates: start: 20110322, end: 20110325
  52. CLEMASTINE FUMARATE [Concomitant]
     Indication: PREMEDICATION
     Dosage: UNK UNK, QD
     Route: 042
     Dates: start: 20110322, end: 20110325
  53. K-DUR [Concomitant]
     Indication: PROPHYLAXIS
     Dosage: 7.45%
     Route: 042
     Dates: start: 20110323, end: 20110323
  54. GRANISETRON [Concomitant]
     Indication: PROPHYLAXIS OF NAUSEA AND VOMITING
     Dosage: UNK UNK, PRN
     Route: 042
     Dates: start: 20110321, end: 20110322
  55. ONDANSETRON [Concomitant]
     Indication: PROPHYLAXIS OF NAUSEA AND VOMITING
     Dosage: UNK UNK, QD
     Route: 042
     Dates: start: 20110323, end: 20110323
  56. CLARITHROMYCIN [Concomitant]
     Indication: INFECTION PROPHYLAXIS
     Dosage: UNK UNK, BID
     Route: 042
     Dates: start: 20110321, end: 20110322
  57. MYCOPHENOLATE MOFETIL [Concomitant]
     Indication: PROPHYLAXIS AGAINST GRAFT VERSUS HOST DISEASE
     Dosage: UNK UNK, BID
     Route: 048
     Dates: start: 20110326, end: 20110328
  58. DIPYRONE [Concomitant]
     Indication: PYREXIA
     Dosage: UNK UNK, QD
     Route: 042
     Dates: start: 20110324, end: 20110324
  59. XIPAMIDE [Concomitant]
     Indication: OEDEMA
     Dosage: UNK UNK, ONCE
     Route: 042
     Dates: start: 20110324, end: 20110324
  60. MAALOX (ALUMINUM HYDROXIDE (+) MAGNESIUM HYDROXIDE) [Concomitant]
     Indication: DYSPEPSIA
     Dosage: UNK UNK, QD
     Route: 048
     Dates: start: 20110326, end: 20110326
  61. DIPYRONE [Concomitant]
     Indication: DYSPEPSIA
     Dosage: UNK UNK, QD
     Route: 048
     Dates: start: 20110326, end: 20110326
  62. CYCLOSPORINE [Concomitant]
     Indication: PROPHYLAXIS AGAINST GRAFT VERSUS HOST DISEASE
     Dosage: UNK UNK, BID
     Route: 016
     Dates: start: 20110324, end: 20110327
  63. ELECTROLYTES (UNSPECIFIED) (+) SODIUM LACTATE [Concomitant]
     Indication: FLUID REPLACEMENT
     Dosage: UNK UNK, BID
     Route: 042
     Dates: start: 20110324, end: 20110327
  64. SODIUM CHLORIDE [Concomitant]
     Indication: FLUID REPLACEMENT
     Dosage: UNK UNK, QD
     Route: 042
     Dates: start: 20110324
  65. FUROSEMIDE [Concomitant]
     Indication: OEDEMA
     Dosage: UNK UNK, PRN
     Route: 042
     Dates: start: 20110324
  66. POTASSIUM (UNSPECIFIED) [Concomitant]
     Indication: PROPHYLAXIS
     Dosage: UNK UNK, PRN
     Route: 042
     Dates: start: 20110324
  67. ALLOPURINOL [Concomitant]
     Indication: PROPHYLAXIS
     Dosage: UNK UNK, PRN
     Route: 048
     Dates: start: 20110327
  68. PREDNISOLON [Concomitant]
     Indication: PROPHYLAXIS AGAINST GRAFT VERSUS HOST DISEASE
     Dosage: UNK UNK, QD
     Route: 048
     Dates: start: 20110327, end: 20110327
  69. MIRTAZAPINE [Concomitant]
     Indication: DEPRESSED MOOD
     Dosage: UNK UNK, QD
     Route: 048
     Dates: start: 20110329, end: 20110405
  70. DIPYRONE [Concomitant]
     Indication: STOMATITIS
     Dosage: UNK UNK, QD
     Route: 048
     Dates: start: 20110327, end: 20110327
  71. PANTOPRAZOLE [Concomitant]
     Indication: PROPHYLAXIS
     Dosage: TWELVE TIMES PER DAY
     Route: 042
     Dates: start: 20110328
  72. METICORTEN [Concomitant]
     Indication: PROPHYLAXIS AGAINST GRAFT VERSUS HOST DISEASE
     Dosage: UNK UNK, BID
     Route: 042
     Dates: start: 20110328
  73. MYCOPHENOLATE MOFETIL [Concomitant]
     Indication: PROPHYLAXIS AGAINST GRAFT VERSUS HOST DISEASE
     Dosage: UNK UNK, BID
     Route: 042
     Dates: start: 20110328
  74. RASBURICASE [Concomitant]
     Indication: PROPHYLAXIS
     Dosage: UNK UNK, QD
     Route: 042
     Dates: start: 20110328, end: 20110328
  75. MINERALS (UNSPECIFIED) [Concomitant]
     Indication: PARENTERAL NUTRITION
     Dosage: UNK UNK, QD
     Route: 042
     Dates: start: 20110328
  76. XIPAMIDE [Concomitant]
     Indication: OEDEMA
     Dosage: UNK UNK, QD
     Route: 048
     Dates: start: 20110331, end: 20110331
  77. METOPROLOL [Concomitant]
     Indication: HYPERTENSION
     Dosage: UNK UNK, QD
     Route: 048
     Dates: start: 20110401
  78. MORPHINE HYDROCHLORIDE [Concomitant]
     Indication: STOMATITIS
     Dosage: UNK UNK, BID
     Route: 042
     Dates: start: 20110328, end: 20110331
  79. CLARITHROMYCIN [Concomitant]
     Indication: INFECTION PROPHYLAXIS
     Dosage: UNK UNK, BID
     Route: 042
     Dates: start: 20110407
  80. TAZOBAC [Concomitant]
     Indication: INFECTION PROPHYLAXIS
     Dosage: UNK UNK, BID
     Route: 042
     Dates: start: 20110407
  81. DIGITOXIN [Concomitant]
     Indication: TACHYCARDIA
     Dosage: UNK UNK, PRN
     Route: 042
     Dates: start: 20110401
  82. METOCLOPRAMIDE [Concomitant]
     Indication: PROPHYLAXIS OF NAUSEA AND VOMITING
     Dosage: UNK UNK, ONCE
     Route: 048
     Dates: start: 20110331, end: 20110331
  83. METOPROLOL [Concomitant]
     Indication: TACHYCARDIA
     Dosage: UNK UNK, ONCE
     Route: 042
     Dates: start: 20110401, end: 20110401
  84. HYDROMORPHONE [Concomitant]
     Indication: STOMATITIS
     Dosage: UNK UNK, PRN
     Route: 042
     Dates: start: 20110401, end: 20110401
  85. HYDROMORPHONE [Concomitant]
     Indication: STOMATITIS
     Dosage: UNK UNK, PRN
     Route: 042
     Dates: start: 20110406
  86. BEBETINA [Concomitant]
     Indication: MUCOSAL INFLAMMATION
     Dosage: UNK UNK, PRN
     Route: 042
     Dates: start: 20110330, end: 20110401
  87. MOXIFLOXACIN HYDROCHLORIDE [Concomitant]
     Indication: INFECTION PROPHYLAXIS
     Dosage: UNK UNK, QD
     Route: 042
     Dates: start: 20110330, end: 20110401
  88. ALBUMIN HUMAN [Concomitant]
     Indication: HYPOALBUMINAEMIA
     Dosage: UNK UNK, ONCE
     Route: 042
     Dates: start: 20110401, end: 20110401
  89. CEFTAZIDIME [Concomitant]
     Indication: INFECTION PROPHYLAXIS
     Dosage: UNK UNK, ONCE
     Route: 042
     Dates: start: 20110401, end: 20110407
  90. TIGECYCLINE [Concomitant]
     Indication: INFECTION PROPHYLAXIS
     Dosage: UNK UNK, ONCE
     Route: 042
     Dates: start: 20110401, end: 20110407
  91. FILGRASTIM [Concomitant]
     Indication: NEUTROPENIA
     Dosage: UNK UNK, QD
     Route: 058
     Dates: start: 20110329, end: 20110403
  92. METOPROLOL [Concomitant]
     Indication: TACHYCARDIA
     Dosage: UNK UNK, ONCE
     Route: 042
     Dates: start: 20110405, end: 20110405
  93. IPRATROPIUM BROMIDE [Concomitant]
     Indication: LUNG INFILTRATION
     Dosage: UNK UNK, ONCE
     Route: 055
     Dates: start: 20110405, end: 20110405
  94. AMIODARONE [Concomitant]
     Indication: TACHYCARDIA
     Dosage: UNK UNK, PRN
     Route: 042
     Dates: start: 20110405, end: 20110405
  95. MELPERONE HYDROCHLORIDE [Concomitant]
     Indication: CONFUSIONAL STATE
     Dosage: UNK UNK, BID
     Route: 042
     Dates: start: 20110402, end: 20110402
  96. EMSER SALT [Concomitant]
     Indication: ASPIRATION
     Dosage: UNK UNK, PRN
     Route: 055
     Dates: start: 20110409, end: 20110411
  97. ALBUTEROL [Concomitant]
     Indication: ASPIRATION
     Dosage: UNK UNK, PRN
     Route: 055
     Dates: start: 20110409, end: 20110412
  98. ESMOLOL HYDROCHLORIDE [Concomitant]
     Indication: TACHYCARDIA
     Dosage: UNK UNK, QD
     Route: 042
     Dates: start: 20110405, end: 20110405

REACTIONS (3)
  - Renal failure [Recovering/Resolving]
  - Aspiration [Recovering/Resolving]
  - Renal failure [Recovered/Resolved]
